FAERS Safety Report 6773629-3 (Version None)
Quarter: 2010Q2

REPORT INFORMATION
  Report Type: 
  Country: None (occurrence: None)
  Receive Date: 20100614
  Receipt Date: 20100601
  Transmission Date: 20101027
  Serious: Yes (Hospitalization, Other)
  Sender: FDA-Public Use
  Company Number: FRP10000493

PATIENT
  Age: 79 Year
  Sex: Female

DRUGS (9)
  1. ACTONEL [Suspect]
     Dosage: 35 MG, 1 /WEEK, ORAL
     Route: 048
     Dates: start: 20080101, end: 20100221
  2. KARDEGIC /00002703/ (ACETYLSALICYLATE LYSINE) [Concomitant]
  3. NEXIUM [Concomitant]
  4. ACARBOSE [Concomitant]
  5. FEROGRAD (ASCORBIC ACID, FERROUS SULFATE) [Concomitant]
  6. ATACAND [Concomitant]
  7. POTASSIUM CHLORIDE [Concomitant]
  8. URSODIOL [Concomitant]
  9. VASTAREL (TRIMETAZIDINE HYDROCHLORIDE) [Concomitant]

REACTIONS (2)
  - DUODENAL ULCER [None]
  - GASTROINTESTINAL NECROSIS [None]
